FAERS Safety Report 14018851 (Version 2)
Quarter: 2017Q4

REPORT INFORMATION
  Report Type: Spontaneous
  Country: US (occurrence: US)
  Receive Date: 20170928
  Receipt Date: 20171106
  Transmission Date: 20180321
  Serious: No
  Sender: FDA-Public Use
  Company Number: US-PFIZER INC-2017419593

PATIENT
  Age: 53 Year
  Sex: Female
  Weight: 70.31 kg

DRUGS (2)
  1. DOXYCYCLINE HYCLATE. [Suspect]
     Active Substance: DOXYCYCLINE HYCLATE
     Indication: ARTHROPOD BITE
     Dosage: 100 MG, 2X/DAY (IN HOSPITAL FOR 8 DAYS)
     Route: 042
     Dates: start: 20170615, end: 20170703
  2. CARAFATE [Concomitant]
     Active Substance: SUCRALFATE
     Dosage: 10 ML, UNK (BEFORE MEALS)

REACTIONS (2)
  - Pain in extremity [Unknown]
  - Product use in unapproved indication [Unknown]
